FAERS Safety Report 6407944-X (Version None)
Quarter: 2009Q4

REPORT INFORMATION
  Report Type: 
  Country: None (occurrence: None)
  Receive Date: 20091015
  Receipt Date: 20090929
  Transmission Date: 20100525
  Serious: Yes (Death)
  Sender: FDA-Public Use
  Company Number: B0597316A

PATIENT
  Sex: 0

DRUGS (1)
  1. TOPOTECAN HYDROCHLORIDE [Suspect]
     Indication: NEOPLASM MALIGNANT
     Dosage: 2.3 MG/M2 / CYCLIC / ORAL
     Route: 048

REACTIONS (1)
  - DEATH [None]
